FAERS Safety Report 26171333 (Version 1)
Quarter: 2025Q4

REPORT INFORMATION
  Report Type: Spontaneous
  Country: CN (occurrence: CN)
  Receive Date: 20251217
  Receipt Date: 20251217
  Transmission Date: 20260118
  Serious: Yes (Hospitalization)
  Sender: MYLAN
  Company Number: CN-MYLANLABS-2025M1107039

PATIENT
  Age: 80 Year
  Sex: Female
  Weight: 57 kg

DRUGS (44)
  1. LIPITOR [Suspect]
     Active Substance: ATORVASTATIN CALCIUM
     Indication: Lipids abnormal
     Dosage: 60 MILLIGRAM, QD
     Route: 061
     Dates: start: 20251110, end: 20251110
  2. LIPITOR [Suspect]
     Active Substance: ATORVASTATIN CALCIUM
     Dosage: 60 MILLIGRAM, QD
     Route: 048
     Dates: start: 20251110, end: 20251110
  3. LIPITOR [Suspect]
     Active Substance: ATORVASTATIN CALCIUM
     Dosage: 60 MILLIGRAM, QD
     Route: 048
     Dates: start: 20251110, end: 20251110
  4. LIPITOR [Suspect]
     Active Substance: ATORVASTATIN CALCIUM
     Dosage: 60 MILLIGRAM, QD
     Route: 061
     Dates: start: 20251110, end: 20251110
  5. GLUCOBAY [Suspect]
     Active Substance: ACARBOSE
     Indication: Blood glucose increased
     Dosage: 600 MILLIGRAM, QD
     Route: 061
     Dates: start: 20251110, end: 20251110
  6. GLUCOBAY [Suspect]
     Active Substance: ACARBOSE
     Dosage: 600 MILLIGRAM, QD
     Route: 048
     Dates: start: 20251110, end: 20251110
  7. GLUCOBAY [Suspect]
     Active Substance: ACARBOSE
     Dosage: 600 MILLIGRAM, QD
     Route: 048
     Dates: start: 20251110, end: 20251110
  8. GLUCOBAY [Suspect]
     Active Substance: ACARBOSE
     Dosage: 600 MILLIGRAM, QD
     Route: 061
     Dates: start: 20251110, end: 20251110
  9. LINAGLIPTIN [Suspect]
     Active Substance: LINAGLIPTIN
     Indication: Blood glucose increased
     Dosage: 25 MILLIGRAM, QD
     Route: 061
     Dates: start: 20251110, end: 20251110
  10. LINAGLIPTIN [Suspect]
     Active Substance: LINAGLIPTIN
     Dosage: 25 MILLIGRAM, QD
     Route: 048
     Dates: start: 20251110, end: 20251110
  11. LINAGLIPTIN [Suspect]
     Active Substance: LINAGLIPTIN
     Dosage: 25 MILLIGRAM, QD
     Route: 048
     Dates: start: 20251110, end: 20251110
  12. LINAGLIPTIN [Suspect]
     Active Substance: LINAGLIPTIN
     Dosage: 25 MILLIGRAM, QD
     Route: 061
     Dates: start: 20251110, end: 20251110
  13. HYDROCHLOROTHIAZIDE [Suspect]
     Active Substance: HYDROCHLOROTHIAZIDE
     Indication: Blood pressure increased
     Dosage: 200 MILLIGRAM, QD
     Route: 061
     Dates: start: 20251110, end: 20251110
  14. HYDROCHLOROTHIAZIDE [Suspect]
     Active Substance: HYDROCHLOROTHIAZIDE
     Dosage: 200 MILLIGRAM, QD
     Route: 048
     Dates: start: 20251110, end: 20251110
  15. HYDROCHLOROTHIAZIDE [Suspect]
     Active Substance: HYDROCHLOROTHIAZIDE
     Dosage: 200 MILLIGRAM, QD
     Route: 048
     Dates: start: 20251110, end: 20251110
  16. HYDROCHLOROTHIAZIDE [Suspect]
     Active Substance: HYDROCHLOROTHIAZIDE
     Dosage: 200 MILLIGRAM, QD
     Route: 061
     Dates: start: 20251110, end: 20251110
  17. NIFEDIPINE [Suspect]
     Active Substance: NIFEDIPINE
     Indication: Blood pressure increased
     Dosage: 120 MILLIGRAM, QD (CONTROLLED RELEASE TABLET)
     Route: 061
     Dates: start: 20251110, end: 20251110
  18. NIFEDIPINE [Suspect]
     Active Substance: NIFEDIPINE
     Dosage: 120 MILLIGRAM, QD (CONTROLLED RELEASE TABLET)
     Route: 048
     Dates: start: 20251110, end: 20251110
  19. NIFEDIPINE [Suspect]
     Active Substance: NIFEDIPINE
     Dosage: 120 MILLIGRAM, QD (CONTROLLED RELEASE TABLET)
     Route: 048
     Dates: start: 20251110, end: 20251110
  20. NIFEDIPINE [Suspect]
     Active Substance: NIFEDIPINE
     Dosage: 120 MILLIGRAM, QD (CONTROLLED RELEASE TABLET)
     Route: 061
     Dates: start: 20251110, end: 20251110
  21. ACARBOSE [Concomitant]
     Active Substance: ACARBOSE
     Dosage: 50 MILLIGRAM, TID
  22. ACARBOSE [Concomitant]
     Active Substance: ACARBOSE
     Dosage: 50 MILLIGRAM, TID
     Route: 065
  23. ACARBOSE [Concomitant]
     Active Substance: ACARBOSE
     Dosage: 50 MILLIGRAM, TID
     Route: 065
  24. ACARBOSE [Concomitant]
     Active Substance: ACARBOSE
     Dosage: 50 MILLIGRAM, TID
  25. LINAGLIPTIN [Concomitant]
     Active Substance: LINAGLIPTIN
     Dosage: 5 MILLIGRAM, QD
  26. LINAGLIPTIN [Concomitant]
     Active Substance: LINAGLIPTIN
     Dosage: 5 MILLIGRAM, QD
     Route: 065
  27. LINAGLIPTIN [Concomitant]
     Active Substance: LINAGLIPTIN
     Dosage: 5 MILLIGRAM, QD
     Route: 065
  28. LINAGLIPTIN [Concomitant]
     Active Substance: LINAGLIPTIN
     Dosage: 5 MILLIGRAM, QD
  29. NIFEDIPINE [Concomitant]
     Active Substance: NIFEDIPINE
     Dosage: 30 MILLIGRAM, QD (CONTROLLED-RELEASE TABLETS)
  30. NIFEDIPINE [Concomitant]
     Active Substance: NIFEDIPINE
     Dosage: 30 MILLIGRAM, QD (CONTROLLED-RELEASE TABLETS)
     Route: 065
  31. NIFEDIPINE [Concomitant]
     Active Substance: NIFEDIPINE
     Dosage: 30 MILLIGRAM, QD (CONTROLLED-RELEASE TABLETS)
     Route: 065
  32. NIFEDIPINE [Concomitant]
     Active Substance: NIFEDIPINE
     Dosage: 30 MILLIGRAM, QD (CONTROLLED-RELEASE TABLETS)
  33. CLOPIDOGREL BISULFATE [Concomitant]
     Active Substance: CLOPIDOGREL BISULFATE
     Dosage: 50 MILLIGRAM, QD
  34. CLOPIDOGREL BISULFATE [Concomitant]
     Active Substance: CLOPIDOGREL BISULFATE
     Dosage: 50 MILLIGRAM, QD
     Route: 065
  35. CLOPIDOGREL BISULFATE [Concomitant]
     Active Substance: CLOPIDOGREL BISULFATE
     Dosage: 50 MILLIGRAM, QD
     Route: 065
  36. CLOPIDOGREL BISULFATE [Concomitant]
     Active Substance: CLOPIDOGREL BISULFATE
     Dosage: 50 MILLIGRAM, QD
  37. ATORVASTATIN CALCIUM [Concomitant]
     Active Substance: ATORVASTATIN CALCIUM
     Dosage: 10 MILLIGRAM, QD
  38. ATORVASTATIN CALCIUM [Concomitant]
     Active Substance: ATORVASTATIN CALCIUM
     Dosage: 10 MILLIGRAM, QD
     Route: 065
  39. ATORVASTATIN CALCIUM [Concomitant]
     Active Substance: ATORVASTATIN CALCIUM
     Dosage: 10 MILLIGRAM, QD
     Route: 065
  40. ATORVASTATIN CALCIUM [Concomitant]
     Active Substance: ATORVASTATIN CALCIUM
     Dosage: 10 MILLIGRAM, QD
  41. LETROZOLE [Concomitant]
     Active Substance: LETROZOLE
     Dosage: 2.5 MILLIGRAM, QD
  42. LETROZOLE [Concomitant]
     Active Substance: LETROZOLE
     Dosage: 2.5 MILLIGRAM, QD
     Route: 065
  43. LETROZOLE [Concomitant]
     Active Substance: LETROZOLE
     Dosage: 2.5 MILLIGRAM, QD
     Route: 065
  44. LETROZOLE [Concomitant]
     Active Substance: LETROZOLE
     Dosage: 2.5 MILLIGRAM, QD

REACTIONS (4)
  - Regurgitation [Recovering/Resolving]
  - Transaminases increased [Recovering/Resolving]
  - Eructation [Recovering/Resolving]
  - Nausea [Recovering/Resolving]

NARRATIVE: CASE EVENT DATE: 20251110
